FAERS Safety Report 4649788-5 (Version None)
Quarter: 2005Q2

REPORT INFORMATION
  Report Type: 
  Country: None (occurrence: None)
  Receive Date: 20050428
  Receipt Date: 20050428
  Transmission Date: 20051028
  Serious: Yes (Other)
  Sender: FDA-Public Use
  Company Number: None

PATIENT
  Age: 40 Year
  Sex: Male
  Weight: 77.1 kg

DRUGS (3)
  1. NORCO [Suspect]
     Indication: ARTHRALGIA
     Dosage: 1 TABLET   Q4H PRN PAIN   ORAL
     Route: 048
     Dates: start: 20050420, end: 20050427
  2. NORCO [Suspect]
     Indication: HAEMOPHILIA
     Dosage: 1 TABLET   Q4H PRN PAIN   ORAL
     Route: 048
     Dates: start: 20050420, end: 20050427
  3. HEMOFIL M [Concomitant]

REACTIONS (1)
  - MALAISE [None]
